FAERS Safety Report 9364705 (Version 3)
Quarter: 2013Q3

REPORT INFORMATION
  Report Type: Report from Study
  Country: US (occurrence: US)
  Receive Date: 20130624
  Receipt Date: 20130702
  Transmission Date: 20140515
  Serious: Yes (Hospitalization, Other)
  Sender: FDA-Public Use
  Company Number: US-BAXTER-2013BAX023405

PATIENT
  Age: 53 Year
  Sex: Female
  Weight: 122.73 kg

DRUGS (15)
  1. ARALAST NP [Suspect]
     Indication: ALPHA-1 ANTI-TRYPSIN DEFICIENCY
     Route: 042
     Dates: start: 20130502, end: 20130502
  2. ARALAST NP [Suspect]
     Route: 042
     Dates: start: 20130424, end: 20130424
  3. ARALAST NP [Suspect]
     Route: 042
     Dates: start: 20130403, end: 20130403
  4. ARALAST NP [Suspect]
     Route: 042
  5. TOPIRAMATE [Concomitant]
     Indication: MIGRAINE
     Route: 048
  6. TOPIRAMATE [Concomitant]
     Route: 048
  7. OXYCODONE [Concomitant]
     Indication: PAIN
     Route: 048
  8. DILTIAZEM ER [Concomitant]
     Indication: PRODUCT USED FOR UNKNOWN INDICATION
     Route: 048
  9. EFFEXOR [Concomitant]
     Indication: PRODUCT USED FOR UNKNOWN INDICATION
     Route: 048
  10. POTASSIUM [Concomitant]
     Indication: PRODUCT USED FOR UNKNOWN INDICATION
     Route: 048
  11. LEVOTHYROXINE [Concomitant]
     Indication: PRODUCT USED FOR UNKNOWN INDICATION
     Route: 048
  12. OMEPRAZOLE DR [Concomitant]
     Indication: PRODUCT USED FOR UNKNOWN INDICATION
     Route: 048
  13. XARELTO [Concomitant]
     Indication: PRODUCT USED FOR UNKNOWN INDICATION
     Route: 048
  14. ALBUTEROL [Concomitant]
     Indication: ALPHA-1 ANTI-TRYPSIN DEFICIENCY
     Route: 045
  15. ALBUTEROL [Concomitant]
     Indication: CHRONIC OBSTRUCTIVE PULMONARY DISEASE

REACTIONS (2)
  - Deep vein thrombosis [Recovered/Resolved]
  - Epistaxis [Recovered/Resolved]
